FAERS Safety Report 16199838 (Version 3)
Quarter: 2019Q2

REPORT INFORMATION
  Report Type: Spontaneous
  Country: US (occurrence: US)
  Receive Date: 20190415
  Receipt Date: 20190523
  Transmission Date: 20190711
  Serious: Yes (Other)
  Sender: FDA-Public Use
  Company Number: US-PFIZER INC-2019149928

PATIENT
  Age: 39 Year
  Sex: Male
  Weight: 93 kg

DRUGS (2)
  1. GENOTROPIN [Suspect]
     Active Substance: SOMATROPIN
     Dosage: 0.2 MG, SINGLE
     Route: 058
     Dates: start: 201901
  2. GENOTROPIN [Suspect]
     Active Substance: SOMATROPIN
     Indication: HYPOTHALAMO-PITUITARY DISORDER
     Dosage: 0.2 MG, SINGLE
     Route: 058
     Dates: start: 201901

REACTIONS (5)
  - Pulmonary thrombosis [Unknown]
  - Wrong technique in device usage process [Unknown]
  - Product dose omission [Unknown]
  - Accident [Unknown]
  - Lower limb fracture [Unknown]
